FAERS Safety Report 25556114 (Version 1)
Quarter: 2025Q3

REPORT INFORMATION
  Report Type: Spontaneous
  Country: US (occurrence: US)
  Receive Date: 20250715
  Receipt Date: 20250715
  Transmission Date: 20251020
  Serious: No
  Sender: SANOFI AVENTIS
  Company Number: US-SA-2025SA198892

PATIENT
  Sex: Male

DRUGS (2)
  1. ELOCTATE [Suspect]
     Active Substance: EFMOROCTOCOG ALFA
     Indication: Factor VIII deficiency
     Dosage: 3565 U, Q4D (3209-3921) SLOW IV PUSH OVER 3-5 MINUTES AND DAILY AS NEEDED
     Route: 042
     Dates: start: 202001
  2. ELOCTATE [Suspect]
     Active Substance: EFMOROCTOCOG ALFA
     Indication: Factor VIII deficiency
     Dosage: 3565 U, Q4D (3209-3921) SLOW IV PUSH OVER 3-5 MINUTES AND DAILY AS NEEDED
     Route: 042
     Dates: start: 202001

REACTIONS (1)
  - Abdominal discomfort [Unknown]
